FAERS Safety Report 7929241-3 (Version None)
Quarter: 2011Q4

REPORT INFORMATION
  Report Type: 
  Country: None (occurrence: None)
  Receive Date: 20111121
  Receipt Date: 20111109
  Transmission Date: 20120403
  Serious: Yes (Hospitalization, Other)
  Sender: FDA-Public Use
  Company Number: FI-BIOGENIDEC-2011BI043075

PATIENT
  Age: 47 Year
  Sex: Female

DRUGS (8)
  1. TIZANIDINE HCL [Concomitant]
  2. IMOVANE [Concomitant]
  3. SERTRALINE HYDROCHLORIDE [Concomitant]
  4. SPASMO-LYT PLUS [Concomitant]
  5. TYSABRI [Suspect]
     Indication: MULTIPLE SCLEROSIS
     Route: 042
     Dates: start: 20060101, end: 20110901
  6. KLOTRIPTYL MITE [Concomitant]
     Route: 048
  7. OPAMOX [Concomitant]
  8. DESOGESTREL AND ETHINYL ESTRADIOL [Concomitant]

REACTIONS (1)
  - PROGRESSIVE MULTIFOCAL LEUKOENCEPHALOPATHY [None]
